FAERS Safety Report 6035227-9 (Version None)
Quarter: 2009Q1

REPORT INFORMATION
  Report Type: 
  Country: None (occurrence: None)
  Receive Date: 20090112
  Receipt Date: 20080105
  Transmission Date: 20090719
  Serious: Yes (Death, Life-Threatening, Hospitalization, Other)
  Sender: FDA-Public Use
  Company Number: US-CVT-080123

PATIENT

DRUGS (6)
  1. RANEXA [Suspect]
     Indication: ANGINA PECTORIS
  2. ISOSORBIDE DINITRATE [Concomitant]
  3. LISINOPRIL                         /00894001/ [Concomitant]
  4. OMEPRAZOLE [Concomitant]
  5. GLYBURIDE [Concomitant]
  6. METOPROLOL                         /00376901/ [Concomitant]

REACTIONS (4)
  - CARDIAC ARREST [None]
  - CHEST PAIN [None]
  - LOSS OF CONSCIOUSNESS [None]
  - VENTRICULAR TACHYCARDIA [None]
